FAERS Safety Report 5983472-0 (Version None)
Quarter: 2008Q4

REPORT INFORMATION
  Report Type: 
  Country: None (occurrence: None)
  Receive Date: 20081208
  Receipt Date: 20081204
  Transmission Date: 20090506
  Serious: Yes (Other)
  Sender: FDA-Public Use
  Company Number: US-KINGPHARMUSA00001-K200801374

PATIENT
  Sex: Female

DRUGS (2)
  1. TAPAZOLE [Suspect]
     Dosage: 5 MG, QD
     Route: 048
     Dates: start: 20020101
  2. TAPAZOLE [Suspect]
     Dosage: 20 MG, QD
     Route: 048

REACTIONS (1)
  - LYMPHOMA [None]
